FAERS Safety Report 6698610-4 (Version None)
Quarter: 2010Q2

REPORT INFORMATION
  Report Type: 
  Country: None (occurrence: None)
  Receive Date: 20100427
  Receipt Date: 20100415
  Transmission Date: 20101027
  Serious: Yes (Other)
  Sender: FDA-Public Use
  Company Number: JP-PFIZER INC-2010043735

PATIENT
  Age: 64 Year
  Sex: Female

DRUGS (11)
  1. AZULFIDINE [Suspect]
     Indication: RHEUMATOID ARTHRITIS
     Dosage: 500 MG, 2X/DAY
     Route: 048
     Dates: start: 20100202, end: 20100212
  2. RIMATIL [Concomitant]
     Indication: RHEUMATOID ARTHRITIS
     Dosage: UNK
     Route: 048
     Dates: start: 20100202, end: 20100212
  3. MOBIC [Concomitant]
     Dosage: 1 TABLET DAILY
     Route: 048
     Dates: start: 20090901
  4. LOXONIN [Concomitant]
     Indication: RHEUMATOID ARTHRITIS
     Dosage: UNK
     Route: 048
  5. SLOW-K [Concomitant]
     Dosage: UNK
     Route: 048
  6. NORTRIPTYLINE HCL [Concomitant]
     Dosage: UNK
     Route: 048
  7. URSO 250 [Concomitant]
     Dosage: UNK
     Route: 048
  8. BIOFERMIN [Concomitant]
     Dosage: UNK
     Route: 048
  9. METHYCOBAL [Concomitant]
     Dosage: UNK
     Route: 048
  10. ASPIRIN [Concomitant]
     Dosage: UNK
     Route: 048
  11. SELBEX [Concomitant]
     Dosage: UNK
     Route: 048

REACTIONS (10)
  - CYTOMEGALOVIRUS TEST POSITIVE [None]
  - EPSTEIN-BARR VIRUS ANTIBODY POSITIVE [None]
  - GENERALISED ERYTHEMA [None]
  - INFECTIOUS MONONUCLEOSIS [None]
  - LYMPHADENOPATHY [None]
  - LYMPHOCYTE MORPHOLOGY ABNORMAL [None]
  - OROPHARYNGEAL PAIN [None]
  - PYREXIA [None]
  - RASH [None]
  - SPLENOMEGALY [None]
